FAERS Safety Report 10310149 (Version 2)
Quarter: 2014Q3

REPORT INFORMATION
  Report Type: Spontaneous
  Country: JP (occurrence: JP)
  Receive Date: 20140717
  Receipt Date: 20140721
  Transmission Date: 20150326
  Serious: Yes (Death)
  Sender: FDA-Public Use
  Company Number: JP-ROCHE-1435837

PATIENT
  Age: 74 Year
  Sex: Male

DRUGS (1)
  1. LUCENTIS [Suspect]
     Active Substance: RANIBIZUMAB
     Indication: DIABETIC RETINAL OEDEMA
     Dosage: IN RIGHT EYE
     Route: 050
     Dates: start: 20140418

REACTIONS (1)
  - Death [Fatal]

NARRATIVE: CASE EVENT DATE: 20140609
